FAERS Safety Report 22344301 (Version 1)
Quarter: 2023Q2

REPORT INFORMATION
  Report Type: Spontaneous
  Country: US (occurrence: None)
  Receive Date: 20230518
  Receipt Date: 20230518
  Transmission Date: 20230721
  Serious: Yes (Hospitalization)
  Sender: FDA-Public Use
  Company Number: None

PATIENT
  Age: 56 Year
  Sex: Male

DRUGS (12)
  1. ENVARSUS XR [Suspect]
     Active Substance: TACROLIMUS
     Indication: Product used for unknown indication
     Route: 048
     Dates: start: 20210723
  2. BD POSIFLUSH INJ [Concomitant]
  3. DEXAMETH PHO [Concomitant]
  4. LANTUS SOLOS INJ [Concomitant]
  5. LEVOTHYROXIN TAB [Concomitant]
  6. LEVOTHYROXIN TAB [Concomitant]
  7. METOPROL SUC TAB [Concomitant]
  8. PANTOPRAZOLE TAB [Concomitant]
  9. PREDNISONE [Concomitant]
     Active Substance: PREDNISONE
  10. SHINGRIX INJ [Concomitant]
  11. SUCRALFATE TAB [Concomitant]
  12. URSODIOL CAP [Concomitant]

REACTIONS (1)
  - Liver transplant [None]

NARRATIVE: CASE EVENT DATE: 20230412
